FAERS Safety Report 16055957 (Version 2)
Quarter: 2019Q1

REPORT INFORMATION
  Report Type: Spontaneous
  Country: IL (occurrence: IL)
  Receive Date: 20190311
  Receipt Date: 20190322
  Transmission Date: 20190418
  Serious: Yes (Other)
  Sender: FDA-Public Use
  Company Number: IL-SA-2019SA062253

PATIENT
  Age: 82 Year
  Sex: Male

DRUGS (4)
  1. NOVORAPID [Concomitant]
     Active Substance: INSULIN ASPART
     Dosage: ONLY TWICE DAILY,NOW ONLY 20
     Route: 065
  2. SULIQUA [Suspect]
     Active Substance: INSULIN GLARGINE\LIXISENATIDE
     Dosage: 20 DOSE STEPS ONCE DAILY
     Route: 065
  3. NOVORAPID [Concomitant]
     Active Substance: INSULIN ASPART
     Dosage: 3 TIMES A DAY,USED TO ADMINISTRATE 35 AT NIGHTTIME
     Route: 065
  4. SOLOSTAR [Suspect]
     Active Substance: DEVICE
     Dosage: UNK
     Route: 065

REACTIONS (3)
  - Retinal degeneration [Not Recovered/Not Resolved]
  - Eye disorder [Unknown]
  - Visual impairment [Not Recovered/Not Resolved]
